FAERS Safety Report 4812006-9 (Version None)
Quarter: 2005Q4

REPORT INFORMATION
  Report Type: 
  Country: None (occurrence: None)
  Receive Date: 20051026
  Receipt Date: 20051013
  Transmission Date: 20060501
  Serious: Yes (Life-Threatening)
  Sender: FDA-Public Use
  Company Number: 2005142636

PATIENT
  Age: 79 Year
  Sex: Male

DRUGS (11)
  1. SULPERAZON                 (SULBACTAM, CEFOPERAZONE) [Suspect]
     Indication: CHOLECYSTITIS
     Dosage: 2 GRAM INTRAVENOUS
     Route: 042
     Dates: start: 20051012
  2. HUMULIN R [Concomitant]
  3. NOVORAPID (INSULIN ASPART) [Concomitant]
  4. BASEN (VOGLIBOSE) [Concomitant]
  5. RABEPRAZOLE SODIUM [Concomitant]
  6. GASCON (DIMETICONE) [Concomitant]
  7. ANPLAG       (SARPROGELATE HYDROCHLORIDE) [Concomitant]
  8. POLAPREZINC(POLAPREZINC) [Concomitant]
  9. ETODOLAC [Concomitant]
  10. TALION (BEPOTASINE BESILATE) [Concomitant]
  11. HARNAL (TAMSULOSIN HYDROCHLORIDE) [Concomitant]

REACTIONS (5)
  - BRADYCARDIA [None]
  - BURNING SENSATION [None]
  - CHOKING SENSATION [None]
  - SHOCK [None]
  - THROAT IRRITATION [None]
